FAERS Safety Report 15946904 (Version 1)
Quarter: 2019Q1

REPORT INFORMATION
  Report Type: Spontaneous
  Country: CA (occurrence: CA)
  Receive Date: 20190212
  Receipt Date: 20190212
  Transmission Date: 20190417
  Serious: Yes (Other)
  Sender: FDA-Public Use
  Company Number: CA-TEVA-2019-CA-1011651

PATIENT
  Age: 56 Year
  Sex: Female

DRUGS (3)
  1. SALAZOPYRIN [Concomitant]
     Active Substance: SULFASALAZINE
     Dosage: 2 GRAM DAILY;
  2. HYDROXYCHLOROQUINE SULFATE. [Concomitant]
     Active Substance: HYDROXYCHLOROQUINE SULFATE
  3. METHOTREXATE. [Suspect]
     Active Substance: METHOTREXATE
     Indication: PRODUCT USED FOR UNKNOWN INDICATION
     Route: 065

REACTIONS (5)
  - Fatigue [Unknown]
  - Glossitis [Unknown]
  - Mouth ulceration [Unknown]
  - Drug ineffective [Unknown]
  - Drug intolerance [Unknown]
